FAERS Safety Report 11833749 (Version 1)
Quarter: 2015Q4

REPORT INFORMATION
  Report Type: Spontaneous
  Country: US (occurrence: US)
  Receive Date: 20151214
  Receipt Date: 20151214
  Transmission Date: 20160305
  Serious: Yes (Hospitalization)
  Sender: FDA-Public Use
  Company Number: US-SA-2015SA209233

PATIENT
  Age: 79 Year
  Sex: Male

DRUGS (2)
  1. PLAVIX [Suspect]
     Active Substance: CLOPIDOGREL BISULFATE
     Indication: THROMBOSIS PROPHYLAXIS
     Route: 065
     Dates: start: 20151101, end: 20151206
  2. PLAVIX [Suspect]
     Active Substance: CLOPIDOGREL BISULFATE
     Indication: ATRIAL FIBRILLATION
     Route: 065
     Dates: start: 20151101, end: 20151206

REACTIONS (6)
  - Haemorrhage [Unknown]
  - Fall [Unknown]
  - Laceration [Unknown]
  - Contusion [Unknown]
  - Wound infection [Unknown]
  - Muscular weakness [Unknown]

NARRATIVE: CASE EVENT DATE: 2015
